FAERS Safety Report 8606106-5 (Version None)
Quarter: 2012Q3

REPORT INFORMATION
  Report Type: 
  Country: None (occurrence: None)
  Receive Date: 20120820
  Receipt Date: 20120809
  Transmission Date: 20120928
  Serious: Yes (Hospitalization, Other)
  Sender: FDA-Public Use
  Company Number: DE-JNJFOC-20120600236

PATIENT
  Age: 52 Year
  Sex: Female
  Weight: 55 kg

DRUGS (2)
  1. FLUPIRTINE MALEATE [Suspect]
     Indication: BACK PAIN
     Route: 048
     Dates: start: 20110701, end: 20111020
  2. IBUPROFEN [Suspect]
     Indication: BACK PAIN
     Dosage: 1800 DOSAGE FORM IN 1 DAY
     Route: 048
     Dates: start: 20110701, end: 20111020

REACTIONS (12)
  - ABDOMINAL PAIN [None]
  - NAUSEA [None]
  - CHOLESTASIS [None]
  - HYPERBILIRUBINAEMIA [None]
  - ALANINE AMINOTRANSFERASE INCREASED [None]
  - TOXICITY TO VARIOUS AGENTS [None]
  - FAECES DISCOLOURED [None]
  - LABORATORY TEST ABNORMAL [None]
  - ASPARTATE AMINOTRANSFERASE INCREASED [None]
  - BLOOD ALKALINE PHOSPHATASE INCREASED [None]
  - JAUNDICE [None]
  - GAMMA-GLUTAMYLTRANSFERASE INCREASED [None]
